FAERS Safety Report 13301865 (Version 8)
Quarter: 2017Q3

REPORT INFORMATION
  Report Type: Spontaneous
  Country: US (occurrence: US)
  Receive Date: 20170307
  Receipt Date: 20170822
  Transmission Date: 20171127
  Serious: Yes (Other)
  Sender: FDA-Public Use
  Company Number: US-PFIZER INC-2017047278

PATIENT
  Age: 58 Year
  Sex: Female
  Weight: 53 kg

DRUGS (7)
  1. SUTENT [Suspect]
     Active Substance: SUNITINIB MALATE
     Indication: RENAL CELL CARCINOMA
     Dosage: 37.5 MG, CYCLIC(DAILY, 28 DAYS ON/14 DAYS OFF, ALSO REPORTED AS 4 WEEKS FOLLOWED BY 2 WEEKS OF REST)
     Route: 048
     Dates: start: 20170210
  2. DOCUSATE SODIUM AND SENNA [Concomitant]
     Active Substance: DOCUSATE SODIUM\SENNOSIDES
     Indication: CONSTIPATION
     Dosage: 2 DF, AS NEEDED [DOCUSATE 50 MG]/ [SENNA 8.6 MG] [AT BEDSIDE]
     Route: 048
  3. BABY ASPIRIN [Concomitant]
     Active Substance: ASPIRIN
     Dosage: 81 MG, 1X/DAY
  4. CENTRUM SILVER [Concomitant]
     Active Substance: MINERALS\VITAMINS
     Dosage: 1 DF, 1X/DAY
     Route: 048
  5. IMODIUM [Concomitant]
     Active Substance: LOPERAMIDE HYDROCHLORIDE
     Dosage: UNK
  6. SUTENT [Suspect]
     Active Substance: SUNITINIB MALATE
     Indication: RENAL CANCER
     Dosage: 25 MG, CYCLIC [2 WEEKS ON/1 WEEK OFF]
     Dates: start: 201703
  7. SUTENT [Suspect]
     Active Substance: SUNITINIB MALATE
     Dosage: 25 MG CYCLIC (2 WEEKS ON/1 WEEK OFF)
     Dates: start: 20170210

REACTIONS (32)
  - Hypoaesthesia [Recovering/Resolving]
  - Blister [Unknown]
  - Abdominal pain upper [Unknown]
  - Hypertension [Unknown]
  - Limb injury [Recovering/Resolving]
  - Memory impairment [Recovering/Resolving]
  - Nail discolouration [Unknown]
  - Feeling of despair [Not Recovered/Not Resolved]
  - Erythema [Unknown]
  - Fatigue [Not Recovered/Not Resolved]
  - Chest pain [Unknown]
  - Lung disorder [Unknown]
  - Tinnitus [Recovering/Resolving]
  - Cough [Not Recovered/Not Resolved]
  - Blood pressure increased [Unknown]
  - Flushing [Not Recovered/Not Resolved]
  - Disturbance in attention [Recovering/Resolving]
  - Dry skin [Unknown]
  - Feeling abnormal [Recovering/Resolving]
  - Fall [Unknown]
  - Malaise [Unknown]
  - Alopecia [Not Recovered/Not Resolved]
  - Ligament sprain [Recovering/Resolving]
  - Rash [Unknown]
  - Headache [Unknown]
  - Nail disorder [Unknown]
  - Productive cough [Recovering/Resolving]
  - Oedema peripheral [Unknown]
  - Scratch [Unknown]
  - Condition aggravated [Not Recovered/Not Resolved]
  - Nasopharyngitis [Recovering/Resolving]
  - Increased appetite [Unknown]

NARRATIVE: CASE EVENT DATE: 201703
